FAERS Safety Report 26128125 (Version 1)
Quarter: 2025Q4

REPORT INFORMATION
  Report Type: Spontaneous
  Country: CN (occurrence: CN)
  Receive Date: 20251207
  Receipt Date: 20251207
  Transmission Date: 20260117
  Serious: Yes (Other)
  Sender: ALEXION PHARMACEUTICALS
  Company Number: CN-ASTRAZENECA-202512CHN001940CN

PATIENT
  Age: 74 Year
  Sex: Male
  Weight: 82 kg

DRUGS (4)
  1. ROSUVASTATIN [Suspect]
     Active Substance: ROSUVASTATIN
     Dosage: 10.000000 MILLIGRAM,1 TIMES 1 DAY
  2. METOPROLOL SUCCINATE [Suspect]
     Active Substance: METOPROLOL SUCCINATE
     Dosage: 23.750000 MILLIGRAM,1 TIMES 1 DAY
  3. CEFOPERAZONE SODIUM\SULBACTAM SODIUM [Suspect]
     Active Substance: CEFOPERAZONE SODIUM\SULBACTAM SODIUM
     Dosage: 3.000000 GRAM,2 TIMES 1 DAY
     Route: 065
  4. LEVOFLOXACIN HYDROCHLORIDE [Suspect]
     Active Substance: LEVOFLOXACIN HYDROCHLORIDE
     Dosage: 0.400000 GRAM,1 TIMES 1 DAY
     Route: 065

REACTIONS (1)
  - Liver injury [Unknown]

NARRATIVE: CASE EVENT DATE: 20251028
